FAERS Safety Report 11149426 (Version 5)
Quarter: 2016Q4

REPORT INFORMATION
  Report Type: Spontaneous
  Country: JP (occurrence: JP)
  Receive Date: 20150529
  Receipt Date: 20161011
  Transmission Date: 20170206
  Serious: Yes (Hospitalization, Disabling)
  Sender: FDA-Public Use
  Company Number: JP-PFIZER INC-2015177977

PATIENT
  Age: 87 Year
  Sex: Male
  Weight: 49 kg

DRUGS (2)
  1. INLYTA [Suspect]
     Active Substance: AXITINIB
     Indication: METASTATIC RENAL CELL CARCINOMA
     Dosage: 5 MG, 2X/DAY
     Route: 048
     Dates: start: 20140806, end: 20150202
  2. INLYTA [Suspect]
     Active Substance: AXITINIB
     Dosage: 5 MG, 2X/DAY
     Route: 048
     Dates: end: 201504

REACTIONS (3)
  - Hypertension [Unknown]
  - Acute kidney injury [Recovered/Resolved with Sequelae]
  - Product use issue [Unknown]

NARRATIVE: CASE EVENT DATE: 201408
